FAERS Safety Report 12426007 (Version 1)
Quarter: 2016Q2

REPORT INFORMATION
  Report Type: Report from Study
  Country: GB (occurrence: GB)
  Receive Date: 20160601
  Receipt Date: 20160601
  Transmission Date: 20160815
  Serious: Yes (Other)
  Sender: FDA-Public Use
  Company Number: GB-GILEAD-2016-0213139

PATIENT
  Age: 45 Year
  Sex: Male

DRUGS (5)
  1. TENOFOVIR DISOPROXIL FUMARATE. [Suspect]
     Active Substance: TENOFOVIR DISOPROXIL FUMARATE
     Indication: HIV INFECTION
     Dosage: UNK
     Route: 065
     Dates: start: 200108
  2. RALTEGRAVIR. [Concomitant]
     Active Substance: RALTEGRAVIR
     Indication: HIV INFECTION
     Route: 065
  3. AMLODIPINE [Concomitant]
     Active Substance: AMLODIPINE BESYLATE
     Dosage: 10 MG, QD
     Route: 065
  4. 3TC [Concomitant]
     Active Substance: LAMIVUDINE
     Indication: HIV INFECTION
     Route: 065
  5. ABACAVIR. [Concomitant]
     Active Substance: ABACAVIR
     Indication: HIV INFECTION
     Route: 065

REACTIONS (3)
  - Renal impairment [Not Recovered/Not Resolved]
  - Renal cyst [Unknown]
  - Renal atrophy [Unknown]

NARRATIVE: CASE EVENT DATE: 2006
